FAERS Safety Report 9405669 (Version 3)
Quarter: 2013Q4

REPORT INFORMATION
  Report Type: Spontaneous
  Country: JP (occurrence: JP)
  Receive Date: 20130717
  Receipt Date: 20131028
  Transmission Date: 20140711
  Serious: Yes (Other)
  Sender: FDA-Public Use
  Company Number: JP-PFIZER INC-2013207670

PATIENT
  Age: 66 Year
  Sex: Male

DRUGS (3)
  1. ANCARON [Suspect]
     Indication: CARDIOVASCULAR DISORDER
     Dosage: UNK
     Route: 048
  2. THYRADIN [Suspect]
     Dosage: UNK
     Route: 048
  3. SOLUTIONS FOR PARENTERAL NUTRITION [Suspect]
     Dosage: UNK
     Route: 065
     Dates: end: 201307

REACTIONS (1)
  - Blood alkaline phosphatase increased [Not Recovered/Not Resolved]
